FAERS Safety Report 11530392 (Version 1)
Quarter: 2015Q3

REPORT INFORMATION
  Report Type: Spontaneous
  Country: US (occurrence: US)
  Receive Date: 20150921
  Receipt Date: 20150921
  Transmission Date: 20151125
  Serious: No
  Sender: FDA-Public Use
  Company Number: US-GLAXOSMITHKLINE-US2015GSK130847

PATIENT
  Sex: Male

DRUGS (1)
  1. VOTRIENT [Suspect]
     Active Substance: PAZOPANIB HYDROCHLORIDE
     Indication: GENITOURINARY TRACT NEOPLASM
     Dosage: 400 MG, QD
     Dates: start: 20150821

REACTIONS (3)
  - Fall [Unknown]
  - Muscular weakness [Unknown]
  - Adverse drug reaction [Unknown]
